FAERS Safety Report 18147507 (Version 2)
Quarter: 2020Q3

REPORT INFORMATION
  Report Type: Spontaneous
  Country: IT (occurrence: IT)
  Receive Date: 20200813
  Receipt Date: 20200916
  Transmission Date: 20201103
  Serious: Yes (Hospitalization)
  Sender: FDA-Public Use
  Company Number: IT-MYLANLABS-2020M1071044

PATIENT
  Age: 12 Year
  Sex: Male
  Weight: 49 kg

DRUGS (6)
  1. IMATINIB. [Suspect]
     Active Substance: IMATINIB MESYLATE
     Indication: ACUTE LYMPHOCYTIC LEUKAEMIA
     Dosage: 340 MILLIGRAM/SQ. METER, QD
     Route: 048
     Dates: start: 20180830, end: 20191013
  2. 6?MERCAPTOPURINE MONOHYDRATE [Concomitant]
     Active Substance: MERCAPTOPURINE
     Indication: PRODUCT USED FOR UNKNOWN INDICATION
     Dosage: 75 MILLIGRAM/SQ. METER, QD
     Route: 048
  3. COTRIMOXAZOLE [Concomitant]
     Active Substance: SULFAMETHOXAZOLE\TRIMETHOPRIM
     Indication: PRODUCT USED FOR UNKNOWN INDICATION
     Dosage: TWO TIMES A WEEK
     Route: 048
  4. METHOTREXATE. [Concomitant]
     Active Substance: METHOTREXATE
     Indication: PRODUCT USED FOR UNKNOWN INDICATION
     Dosage: 20 MILLIGRAM/SQ. METER, QW
     Route: 048
  5. VINCRISTINE [Concomitant]
     Active Substance: VINCRISTINE
     Indication: PRODUCT USED FOR UNKNOWN INDICATION
     Dosage: EVERY 29 DAYS
     Route: 042
  6. NYSTATIN. [Concomitant]
     Active Substance: NYSTATIN
     Indication: PRODUCT USED FOR UNKNOWN INDICATION
     Dosage: 500000 INTERNATIONAL UNIT, TID
     Route: 048

REACTIONS (9)
  - Musculoskeletal pain [Recovered/Resolved]
  - Petechiae [Recovered/Resolved]
  - Blood fibrinogen decreased [Recovered/Resolved]
  - Thrombocytopenia [Recovered/Resolved]
  - Cholangitis [Recovered/Resolved]
  - Thrombotic microangiopathy [Recovered/Resolved]
  - Puncture site haemorrhage [Recovered/Resolved]
  - Anaemia [Recovered/Resolved]
  - Fibrin D dimer increased [Recovered/Resolved]
